FAERS Safety Report 14619423 (Version 1)
Quarter: 2018Q1

REPORT INFORMATION
  Report Type: Spontaneous
  Country: FR (occurrence: FR)
  Receive Date: 20180309
  Receipt Date: 20180309
  Transmission Date: 20180509
  Serious: Yes (Other)
  Sender: FDA-Public Use
  Company Number: FR-AUROBINDO-AUR-APL-2018-012479

PATIENT
  Age: 12 Year
  Sex: Male

DRUGS (2)
  1. ABILIFY [Suspect]
     Active Substance: ARIPIPRAZOLE
     Indication: SCHIZOPHRENIA
     Dosage: 10 MILLIGRAM, INCREASED TO 10MG  08NOV2012-19NOV2012: 10MG
     Route: 048
     Dates: start: 20121118, end: 20121119
  2. RISPERIDONE FILM-COATED TABLETS [Suspect]
     Active Substance: RISPERIDONE
     Indication: PRODUCT USED FOR UNKNOWN INDICATION
     Dosage: 2 MILLIGRAM, ONCE A DAY, REDUCED TO 1.5MG  INTERRUPTED AND RESTARTED
     Route: 048
     Dates: start: 20120918

REACTIONS (5)
  - Off label use [Unknown]
  - Dysarthria [Recovered/Resolved]
  - Dyskinesia [Recovered/Resolved]
  - Confusional state [Recovered/Resolved]
  - Dystonia [Unknown]

NARRATIVE: CASE EVENT DATE: 20121118
